FAERS Safety Report 11458060 (Version 2)
Quarter: 2017Q4

REPORT INFORMATION
  Report Type: Spontaneous
  Country: US (occurrence: US)
  Receive Date: 20150904
  Receipt Date: 20171005
  Transmission Date: 20180320
  Serious: Yes (Hospitalization)
  Sender: FDA-Public Use
  Company Number: US-SA-2015SA132127

PATIENT
  Age: 64 Year
  Sex: Male

DRUGS (4)
  1. SEVELAMER SALT NOT SPECIFIED [Suspect]
     Active Substance: SEVELAMER
     Indication: HYPERPHOSPHATAEMIA
     Route: 065
  2. ASPIRIN. [Concomitant]
     Active Substance: ASPIRIN
     Route: 065
  3. HYDRALAZINE [Concomitant]
     Active Substance: HYDRALAZINE HYDROCHLORIDE
     Route: 065
  4. GABAPENTIN. [Concomitant]
     Active Substance: GABAPENTIN
     Route: 065

REACTIONS (10)
  - Pneumatosis [Unknown]
  - Abdominal pain [Unknown]
  - Gastritis haemorrhagic [Unknown]
  - Nausea [Unknown]
  - Tachycardia [Unknown]
  - Haematemesis [Unknown]
  - Haemoglobin decreased [Unknown]
  - Gastrointestinal mucosal necrosis [Unknown]
  - Pyrexia [Unknown]
  - Hypotension [Unknown]
